FAERS Safety Report 9065878 (Version 2)
Quarter: 2013Q1

REPORT INFORMATION
  Report Type: Spontaneous
  Country: US (occurrence: US)
  Receive Date: 20130131
  Receipt Date: 20130131
  Transmission Date: 20140127
  Serious: Yes (Other)
  Sender: FDA-Public Use
  Company Number: US-ABBOTT-12P-163-1017411-00

PATIENT
  Sex: Male

DRUGS (1)
  1. HUMIRA PEN [Suspect]
     Indication: CROHN^S DISEASE
     Dosage: UNKNOWN

REACTIONS (2)
  - Demyelination [Unknown]
  - Herpes zoster [Unknown]
